FAERS Safety Report 17629824 (Version 1)
Quarter: 2020Q2

REPORT INFORMATION
  Report Type: Spontaneous
  Country: CA (occurrence: CA)
  Receive Date: 20200406
  Receipt Date: 20200406
  Transmission Date: 20200713
  Serious: Yes (Hospitalization)
  Sender: FDA-Public Use
  Company Number: CA-PFIZER INC-2020138884

PATIENT
  Age: 15 Year
  Sex: Female
  Weight: 45 kg

DRUGS (13)
  1. ETOPOSIDE. [Concomitant]
     Active Substance: ETOPOSIDE
     Dosage: UNK
  2. DOXORUBICINE [DOXORUBICIN] [Concomitant]
     Active Substance: DOXORUBICIN
     Dosage: UNK
  3. CYCLOPHOSPHAMIDE. [Suspect]
     Active Substance: CYCLOPHOSPHAMIDE
     Indication: HODGKIN^S DISEASE
     Dosage: 800 MG/M2, UNK
     Route: 042
  4. MELPHALAN. [Concomitant]
     Active Substance: MELPHALAN
     Dosage: UNK
  5. VINORELBINE TARTRATE. [Concomitant]
     Active Substance: VINORELBINE TARTRATE
     Dosage: UNK
  6. GEMCITABINE. [Concomitant]
     Active Substance: GEMCITABINE
     Dosage: UNK
  7. BLEOMYCIN SULFATE [Suspect]
     Active Substance: BLEOMYCIN SULFATE
     Indication: HODGKIN^S DISEASE
     Dosage: UNK
     Route: 042
  8. ADCETRIS [Concomitant]
     Active Substance: BRENTUXIMAB VEDOTIN
     Dosage: UNK
  9. DEXAMETHASONE. [Concomitant]
     Active Substance: DEXAMETHASONE
     Dosage: UNK
  10. VINCRISTINE SULFATE. [Suspect]
     Active Substance: VINCRISTINE SULFATE
     Indication: HODGKIN^S DISEASE
     Dosage: 1.4 MG/M2, UNK
     Route: 042
  11. PREDNISONE. [Concomitant]
     Active Substance: PREDNISONE
     Dosage: UNK
  12. METHYLPREDNISOLONE. [Concomitant]
     Active Substance: METHYLPREDNISOLONE
     Dosage: UNK
  13. BUSULFAN. [Concomitant]
     Active Substance: BUSULFAN
     Dosage: UNK

REACTIONS (1)
  - Mucosal inflammation [Recovering/Resolving]
